FAERS Safety Report 11847830 (Version 1)
Quarter: 2015Q4

REPORT INFORMATION
  Report Type: Spontaneous
  Country: FR (occurrence: FR)
  Receive Date: 20151217
  Receipt Date: 20151217
  Transmission Date: 20160305
  Serious: Yes (Other)
  Sender: FDA-Public Use
  Company Number: FR-ASTRAZENECA-2015SF21342

PATIENT
  Age: 17384 Day
  Sex: Male

DRUGS (12)
  1. XEROQUEL [Interacting]
     Active Substance: QUETIAPINE FUMARATE
     Indication: SCHIZOPHRENIA
     Route: 048
     Dates: start: 20151123, end: 20151129
  2. XEROQUEL [Interacting]
     Active Substance: QUETIAPINE FUMARATE
     Indication: SCHIZOPHRENIA
     Route: 048
     Dates: start: 20151121, end: 20151122
  3. LEPTICUR [Concomitant]
     Active Substance: TROPATEPINE HYDROCHLORIDE
  4. NOZINAN [Concomitant]
     Active Substance: LEVOMEPROMAZINE
     Dosage: AS REQUIRED
  5. XEROQUEL [Interacting]
     Active Substance: QUETIAPINE FUMARATE
     Indication: SCHIZOPHRENIA
     Route: 048
     Dates: start: 20151119, end: 20151120
  6. LEPONEX [Interacting]
     Active Substance: CLOZAPINE
     Route: 048
     Dates: end: 20151127
  7. BELLADONE TINCTURE [Concomitant]
     Indication: SALIVARY HYPERSECRETION
  8. XEROQUEL [Interacting]
     Active Substance: QUETIAPINE FUMARATE
     Indication: SCHIZOPHRENIA
     Route: 048
     Dates: start: 20151130
  9. TERCIAN [Concomitant]
     Active Substance: CYAMEMAZINE
  10. LORAZEPAM. [Concomitant]
     Active Substance: LORAZEPAM
  11. DEPAKOTE [Concomitant]
     Active Substance: DIVALPROEX SODIUM
     Route: 048
  12. XEROQUEL [Suspect]
     Active Substance: QUETIAPINE FUMARATE
     Indication: SCHIZOPHRENIA
     Route: 048
     Dates: start: 20151119

REACTIONS (5)
  - Drug interaction [Recovered/Resolved]
  - Off label use [Not Recovered/Not Resolved]
  - Overdose [Recovered/Resolved]
  - Disorientation [Unknown]
  - Confusional state [Unknown]

NARRATIVE: CASE EVENT DATE: 20151119
